FAERS Safety Report 5339503-4 (Version None)
Quarter: 2007Q2

REPORT INFORMATION
  Report Type: 
  Country: None (occurrence: None)
  Receive Date: 20070525
  Receipt Date: 20070521
  Transmission Date: 20071010
  Serious: Yes (Hospitalization)
  Sender: FDA-Public Use
  Company Number: LTI2007A00112

PATIENT
  Age: 85 Year
  Sex: Male

DRUGS (9)
  1. LANSOPRAZOLE [Suspect]
     Dosage: 30 MG (30 MG, 1 IN 1 D) ORAL
     Route: 048
     Dates: end: 20070320
  2. COVERSYL (PERINDOPRIL) (TABLETS) [Suspect]
     Indication: CARDIAC FAILURE
     Dosage: 2 MG (2 MG, 1 IN 1) ORAL
     Route: 048
     Dates: end: 20070320
  3. FUROSEMIDE [Suspect]
     Indication: CARDIAC FAILURE
     Dosage: 80 MG (40 MG, 2 IN 1 D) ORAL
     Route: 048
     Dates: end: 20070320
  4. SINGULAIR [Concomitant]
  5. CARDENSIEL (BISOPROLOL FUMARATE) (TABLETS) [Concomitant]
  6. SIMVASTATINE (SIMVASTATIN) (TABLETS) [Concomitant]
  7. CETIRIZINE (CETIRIZINE) (TABLETS) [Concomitant]
  8. PLAVIX [Concomitant]
  9. KARDEGIC (ACETYLSALICYLATE LYSINE) [Concomitant]

REACTIONS (4)
  - HYPONATRAEMIA [None]
  - HYPOTENSION [None]
  - LUNG DISORDER [None]
  - RENAL FAILURE ACUTE [None]
